FAERS Safety Report 4741953-1 (Version None)
Quarter: 2005Q3

REPORT INFORMATION
  Report Type: 
  Country: None (occurrence: None)
  Receive Date: 20050801
  Receipt Date: 20050613
  Transmission Date: 20060218
  Serious: No
  Sender: FDA-Public Use
  Company Number: 2005PV000034

PATIENT
  Age: 72 Year
  Sex: Male
  Weight: 92.9874 kg

DRUGS (15)
  1. BYETTA [Suspect]
     Indication: DIABETES MELLITUS NON-INSULIN-DEPENDENT
     Dosage: 5 UG;BID;SC
     Route: 058
     Dates: start: 20050610
  2. AMARYL [Concomitant]
  3. HYDROCHLOROTHIAZIDE [Concomitant]
  4. DITROPAN [Concomitant]
  5. SALSALATE [Concomitant]
  6. ZOCOR [Concomitant]
  7. GABAPENTIN [Concomitant]
  8. METOLAZONE [Concomitant]
  9. MOBIC [Concomitant]
  10. ULTRACET [Concomitant]
  11. CENTRUM [Concomitant]
  12. PRAVACHOL [Concomitant]
  13. AMBIEN [Concomitant]
  14. OMEGA-3 [Concomitant]
  15. GLUCOSAMINE [Concomitant]

REACTIONS (1)
  - BLOOD GLUCOSE INCREASED [None]
